FAERS Safety Report 10660765 (Version 1)
Quarter: 2014Q4

REPORT INFORMATION
  Report Type: Spontaneous
  Country: US (occurrence: US)
  Receive Date: 20141217
  Receipt Date: 20141217
  Transmission Date: 20150529
  Serious: No
  Sender: FDA-Public Use
  Company Number: US-009507513-1411USA002630

PATIENT
  Age: 67 Year
  Sex: Female

DRUGS (2)
  1. PEGINTRON [Suspect]
     Active Substance: PEGINTERFERON ALFA-2B
     Indication: HEPATITIS C
     Dosage: STRENGTH 80/0.5 (UNIT UNKNOWN), DOSE 80/0.5(UNIT UNKNOWN) , ONCE A WEEK
     Dates: start: 20141027
  2. VALIUM [Concomitant]
     Active Substance: DIAZEPAM

REACTIONS (3)
  - Injection site haemorrhage [Not Recovered/Not Resolved]
  - Injection site pain [Not Recovered/Not Resolved]
  - Injection site erythema [Not Recovered/Not Resolved]

NARRATIVE: CASE EVENT DATE: 20141027
